FAERS Safety Report 11196492 (Version 1)
Quarter: 2015Q2

REPORT INFORMATION
  Report Type: Spontaneous
  Country: AU (occurrence: AU)
  Receive Date: 20150617
  Receipt Date: 20150617
  Transmission Date: 20150821
  Serious: Yes (Hospitalization)
  Sender: FDA-Public Use
  Company Number: AU-SA-2015SA083104

PATIENT
  Sex: Male

DRUGS (2)
  1. RIFAMPICIN [Suspect]
     Active Substance: RIFAMPIN
     Route: 065
  2. METHADONE HYDROCHLORIDE. [Interacting]
     Active Substance: METHADONE HYDROCHLORIDE
     Indication: ARTHRALGIA
     Route: 065

REACTIONS (4)
  - Insomnia [Unknown]
  - Drug interaction [Unknown]
  - Agitation [Unknown]
  - Night sweats [Unknown]
